FAERS Safety Report 5213068-X (Version None)
Quarter: 2007Q1

REPORT INFORMATION
  Report Type: 
  Country: None (occurrence: None)
  Receive Date: 20070119
  Receipt Date: 20070109
  Transmission Date: 20070707
  Serious: Yes (Hospitalization)
  Sender: FDA-Public Use
  Company Number: FRWYE083609JAN07

PATIENT
  Age: 45 Year
  Sex: Female

DRUGS (3)
  1. ENBREL [Suspect]
     Indication: SJOGREN'S SYNDROME
     Dosage: 2 DOSES TOTAL WEEKLY
     Route: 058
     Dates: start: 20060201, end: 20060303
  2. SOLUPRED [Suspect]
     Indication: SJOGREN'S SYNDROME
     Route: 048
     Dates: end: 20060303
  3. ACETAMINOPHEN AND TRAMADOL HCL [Concomitant]
     Indication: SJOGREN'S SYNDROME
     Dosage: UNKNOWN
     Route: 048

REACTIONS (3)
  - HAEMOPTYSIS [None]
  - LUNG INFECTION [None]
  - PSEUDOMONAS INFECTION [None]
